FAERS Safety Report 12640550 (Version 2)
Quarter: 2016Q3

REPORT INFORMATION
  Report Type: Spontaneous
  Country: US (occurrence: US)
  Receive Date: 20160810
  Receipt Date: 20160927
  Transmission Date: 20161109
  Serious: Yes (Other)
  Sender: FDA-Public Use
  Company Number: US-PFIZER INC-2016375211

PATIENT
  Age: 70 Year
  Sex: Male
  Weight: 86.16 kg

DRUGS (5)
  1. INLYTA [Suspect]
     Active Substance: AXITINIB
     Dosage: 3 MG, 2X/DAY
     Dates: start: 20140717
  2. INLYTA [Suspect]
     Active Substance: AXITINIB
     Dosage: UNK
     Route: 048
     Dates: end: 201501
  3. INLYTA [Suspect]
     Active Substance: AXITINIB
     Dosage: 5 MG, 2X/DAY, (Q 12 HOURS)
     Route: 048
     Dates: start: 20141003, end: 20141003
  4. INLYTA [Suspect]
     Active Substance: AXITINIB
     Indication: RENAL CANCER
     Dosage: 5 MG, 2X/DAY
     Route: 048
  5. INLYTA [Suspect]
     Active Substance: AXITINIB
     Dosage: 5 MG, 2X/DAY, (Q 12 HOURS)
     Route: 048
     Dates: end: 20141014

REACTIONS (5)
  - Hypertension [Unknown]
  - Renal cancer [Unknown]
  - Renal failure [Unknown]
  - Mucosal inflammation [Unknown]
  - Disease progression [Unknown]
